FAERS Safety Report 15142599 (Version 1)
Quarter: 2018Q3

REPORT INFORMATION
  Report Type: Spontaneous
  Country: US (occurrence: US)
  Receive Date: 20180713
  Receipt Date: 20180713
  Transmission Date: 20181010
  Serious: Yes (Other)
  Sender: FDA-Public Use
  Company Number: US-LPDUSPRD-20181227

PATIENT
  Age: 39 Year
  Sex: Male

DRUGS (1)
  1. LIDOCAINE HCL INJECTION, USP (0517?9402?01) [Suspect]
     Active Substance: LIDOCAINE HYDROCHLORIDE
     Dosage: 1?2 ML
     Route: 051

REACTIONS (2)
  - Facial paralysis [Unknown]
  - Product use in unapproved indication [Unknown]
